FAERS Safety Report 10493185 (Version 1)
Quarter: 2014Q4

REPORT INFORMATION
  Report Type: Spontaneous
  Country: US (occurrence: US)
  Receive Date: 20141002
  Receipt Date: 20141002
  Transmission Date: 20150528
  Serious: No
  Sender: FDA-Public Use
  Company Number: US-GLAXOSMITHKLINE-A1080585A

PATIENT
  Sex: Female

DRUGS (7)
  1. METOPROLOL [Concomitant]
     Active Substance: METOPROLOL
  2. NEXIUM [Concomitant]
     Active Substance: ESOMEPRAZOLE MAGNESIUM
  3. ZYRTEC [Concomitant]
     Active Substance: CETIRIZINE HYDROCHLORIDE
  4. BENAZAPRIL [Concomitant]
  5. ADVAIR HFA [Suspect]
     Active Substance: FLUTICASONE PROPIONATE\SALMETEROL XINAFOATE
     Indication: ASTHMA
     Dosage: 1PUFF PER DAY
     Route: 055
     Dates: start: 200907
  6. GABAPENTIN. [Concomitant]
     Active Substance: GABAPENTIN
  7. NORVASC [Concomitant]
     Active Substance: AMLODIPINE BESYLATE

REACTIONS (6)
  - Oral mucosal exfoliation [Unknown]
  - Off label use [Unknown]
  - Drug ineffective [Unknown]
  - Oral pain [Recovering/Resolving]
  - Dyspnoea [Unknown]
  - Product quality issue [Unknown]
